FAERS Safety Report 8272683-X (Version None)
Quarter: 2012Q2

REPORT INFORMATION
  Report Type: 
  Country: None (occurrence: None)
  Receive Date: 20120411
  Receipt Date: 20120330
  Transmission Date: 20120825
  Serious: Yes (Hospitalization, Other)
  Sender: FDA-Public Use
  Company Number: FR-BAXTER-2012BAX001896

PATIENT
  Sex: Male

DRUGS (2)
  1. ADVATE [Suspect]
     Route: 042
     Dates: start: 20111205, end: 20111205
  2. ADVATE [Suspect]
     Route: 042
     Dates: start: 20120314, end: 20120315

REACTIONS (1)
  - FACTOR VIII INHIBITION [None]
